FAERS Safety Report 4866613-8 (Version None)
Quarter: 2005Q4

REPORT INFORMATION
  Report Type: 
  Country: None (occurrence: None)
  Receive Date: 20051221
  Receipt Date: 20051208
  Transmission Date: 20060501
  Serious: Yes (Other)
  Sender: FDA-Public Use
  Company Number: 2005080009

PATIENT
  Age: 35 Year
  Sex: Female
  Weight: 52.1637 kg

DRUGS (1)
  1. DEPO-PROVERA [Suspect]
     Indication: ILL-DEFINED DISORDER
     Dosage: 150 MG (150 MG, 1 ST INJECTION; EVERY 3 MONTHS), INTRAMUSCULAR
     Route: 030
     Dates: start: 20050204, end: 20050204

REACTIONS (20)
  - ALOPECIA [None]
  - AMENORRHOEA [None]
  - ANXIETY [None]
  - CRYING [None]
  - DEPRESSION [None]
  - DIZZINESS [None]
  - FEELING ABNORMAL [None]
  - HAEMORRHAGE [None]
  - HEADACHE [None]
  - INSOMNIA [None]
  - LOSS OF CONSCIOUSNESS [None]
  - LOSS OF EMPLOYMENT [None]
  - METABOLIC DISORDER [None]
  - PSYCHIATRIC SYMPTOM [None]
  - SELF ESTEEM DECREASED [None]
  - SKIN DISCOLOURATION [None]
  - SUICIDAL IDEATION [None]
  - THROMBOSIS [None]
  - THYROID DISORDER [None]
  - WEIGHT DECREASED [None]
